FAERS Safety Report 8009309-6 (Version None)
Quarter: 2011Q4

REPORT INFORMATION
  Report Type: 
  Country: None (occurrence: None)
  Receive Date: 20111227
  Receipt Date: 20111220
  Transmission Date: 20120403
  Serious: Yes (Other)
  Sender: FDA-Public Use
  Company Number: US-TEVA-277784USA

PATIENT
  Sex: Female
  Weight: 69.008 kg

DRUGS (1)
  1. COPAXONE [Suspect]
     Indication: MULTIPLE SCLEROSIS
     Route: 058
     Dates: start: 20101106, end: 20110321

REACTIONS (2)
  - PREMATURE BABY [None]
  - HELLP SYNDROME [None]
